FAERS Safety Report 8618702 (Version 3)
Quarter: 2013Q2

REPORT INFORMATION
  Report Type: Spontaneous
  Country: US (occurrence: US)
  Receive Date: 20120618
  Receipt Date: 20130423
  Transmission Date: 20140414
  Serious: Yes (Other)
  Sender: FDA-Public Use
  Company Number: US-BAYER-2012-059524

PATIENT
  Age: 43 Year
  Sex: Female

DRUGS (6)
  1. AVELOX [Suspect]
     Indication: MYCOPLASMA INFECTION
     Dosage: UNK
     Dates: start: 201012
  2. AVELOX [Suspect]
     Indication: MYCOPLASMA INFECTION
     Dosage: UNK
     Dates: start: 2011
  3. NEXIUM [Concomitant]
  4. LEVOTHYROXINE [Concomitant]
  5. TOPIRAMATE [Concomitant]
  6. CRESTOR [Concomitant]

REACTIONS (11)
  - Arthralgia [Not Recovered/Not Resolved]
  - Paraesthesia [Not Recovered/Not Resolved]
  - Tendon pain [Not Recovered/Not Resolved]
  - Memory impairment [Not Recovered/Not Resolved]
  - Muscle rupture [None]
  - Joint crepitation [None]
  - Pain [None]
  - Tendonitis [None]
  - Meniscus injury [None]
  - Pain in extremity [None]
  - Stress fracture [None]
